FAERS Safety Report 20814406 (Version 1)
Quarter: 2022Q2

REPORT INFORMATION
  Report Type: Spontaneous
  Country: US (occurrence: None)
  Receive Date: 20220511
  Receipt Date: 20220511
  Transmission Date: 20220721
  Serious: Yes (Life-Threatening, Hospitalization, Other)
  Sender: FDA-Public Use
  Company Number: US-MLMSERVICE-20220426-3520660-1

PATIENT
  Age: 49 Year
  Sex: Male

DRUGS (1)
  1. CISPLATIN [Suspect]
     Active Substance: CISPLATIN
     Indication: Squamous cell carcinoma of head and neck
     Dosage: UNKNOWN
     Route: 065

REACTIONS (5)
  - Hepatitis B reactivation [Unknown]
  - Ascites [Unknown]
  - Portal hypertension [Unknown]
  - Immune reconstitution inflammatory syndrome [Unknown]
  - Hepatic cirrhosis [Unknown]
